FAERS Safety Report 9404777 (Version 3)
Quarter: 2013Q4

REPORT INFORMATION
  Report Type: Report from Study
  Country: SG (occurrence: SG)
  Receive Date: 20130717
  Receipt Date: 20131118
  Transmission Date: 20140711
  Serious: Yes (Death, Life-Threatening, Hospitalization)
  Sender: FDA-Public Use
  Company Number: SG-INCYTE CORPORATION-2013IN001466

PATIENT
  Age: 65 Year
  Sex: Male
  Weight: 54 kg

DRUGS (3)
  1. INC424 [Suspect]
     Indication: MYELOFIBROSIS
     Dosage: 5 MG, BID
     Route: 048
     Dates: start: 20130531, end: 20130704
  2. PI3K INHIBITOR [Suspect]
     Indication: MYELOFIBROSIS
     Dosage: 40 MG, OM
     Route: 048
     Dates: start: 20130531, end: 20130704
  3. GLIPIZIDE [Concomitant]
     Dosage: UNK
     Dates: start: 20130613

REACTIONS (4)
  - Tumour lysis syndrome [Fatal]
  - Duodenal ulcer haemorrhage [Fatal]
  - Abdominal distension [Fatal]
  - Renal failure acute [Fatal]
